FAERS Safety Report 6682334-3 (Version None)
Quarter: 2010Q2

REPORT INFORMATION
  Report Type: 
  Country: None (occurrence: None)
  Receive Date: 20100414
  Receipt Date: 20100414
  Transmission Date: 20101027
  Serious: Yes (Hospitalization, Disabling, Other)
  Sender: FDA-Public Use
  Company Number: None

PATIENT
  Sex: Female
  Weight: 90.7194 kg

DRUGS (1)
  1. BOSTON SCIENTIFIC TAXUS LIBERTE STENTS [Suspect]

REACTIONS (3)
  - CHEST PAIN [None]
  - CORONARY ARTERIAL STENT INSERTION [None]
  - QUALITY OF LIFE DECREASED [None]
